FAERS Safety Report 25094092 (Version 1)
Quarter: 2025Q1

REPORT INFORMATION
  Report Type: Spontaneous
  Country: US (occurrence: None)
  Receive Date: 20250318
  Receipt Date: 20250318
  Transmission Date: 20250409
  Serious: No
  Sender: FDA-CTU
  Company Number: None

PATIENT
  Age: 48 Year
  Sex: Female
  Weight: 113.85 kg

DRUGS (1)
  1. INJECTAFER [Suspect]
     Active Substance: FERRIC CARBOXYMALTOSE
     Indication: Blood iron decreased
     Dates: start: 20250310, end: 20250318

REACTIONS (5)
  - Pain [None]
  - Dizziness [None]
  - Fatigue [None]
  - Rhinorrhoea [None]
  - Headache [None]

NARRATIVE: CASE EVENT DATE: 20250318
